FAERS Safety Report 4743757-2 (Version None)
Quarter: 2005Q3

REPORT INFORMATION
  Report Type: 
  Country: None (occurrence: None)
  Receive Date: 20050812
  Receipt Date: 20050803
  Transmission Date: 20060218
  Serious: Yes (Hospitalization)
  Sender: FDA-Public Use
  Company Number: FR-GLAXOSMITHKLINE-B0389848A

PATIENT
  Sex: Male

DRUGS (2)
  1. LAMICTAL [Suspect]
     Indication: DRUG EXPOSURE DURING PREGNANCY
     Dates: end: 20050718
  2. LAMICTAL [Suspect]
     Dates: end: 20050718

REACTIONS (6)
  - DRUG EXPOSURE DURING PREGNANCY [None]
  - DRUG EXPOSURE VIA BREAST MILK [None]
  - ERYTHEMA [None]
  - FEEDING DISORDER NEONATAL [None]
  - SOMNOLENCE NEONATAL [None]
  - WEIGHT DECREASE NEONATAL [None]
